FAERS Safety Report 16693544 (Version 1)
Quarter: 2019Q3

REPORT INFORMATION
  Report Type: Spontaneous
  Country: US (occurrence: US)
  Receive Date: 20190812
  Receipt Date: 20190812
  Transmission Date: 20191004
  Serious: No
  Sender: FDA-Public Use
  Company Number: US-AMGEN INC.-USASP2019126048

PATIENT

DRUGS (1)
  1. AIMOVIG [Suspect]
     Active Substance: ERENUMAB-AOOE
     Indication: MIGRAINE
     Dosage: AT LEAST ONE INJECTIONOF 70MG OR 140MG
     Route: 065

REACTIONS (4)
  - Constipation [Unknown]
  - Drug ineffective [Unknown]
  - Injection site pain [Unknown]
  - Muscle spasms [Unknown]
